FAERS Safety Report 24089678 (Version 2)
Quarter: 2024Q4

REPORT INFORMATION
  Report Type: Spontaneous
  Country: US (occurrence: US)
  Receive Date: 20240715
  Receipt Date: 20241202
  Transmission Date: 20250115
  Serious: Yes (Death, Other)
  Sender: CHEPLAPHARM
  Company Number: US-CHEPLA-2024008598

PATIENT
  Age: 31 Day
  Sex: Female

DRUGS (5)
  1. GANCICLOVIR [Suspect]
     Active Substance: GANCICLOVIR
     Indication: Congenital cytomegalovirus infection
     Dosage: 6 MG/KG/DOSE?DAILY DOSE: 12 MILLIGRAM/KG
     Route: 042
  2. VANCOMYCIN [Suspect]
     Active Substance: VANCOMYCIN
     Indication: Congenital cytomegalovirus infection
     Route: 042
  3. PIPERACILLIN AND TAZOBACTAM [Suspect]
     Active Substance: PIPERACILLIN SODIUM\TAZOBACTAM SODIUM
     Indication: Congenital cytomegalovirus infection
     Route: 042
  4. CAFFEINE [Concomitant]
     Active Substance: CAFFEINE
     Indication: Apnoea
  5. PHENOBARBITAL [Concomitant]
     Active Substance: PHENOBARBITAL
     Indication: Lissencephaly
     Dosage: 4 MG/KG ?DAILY DOSE: 8 MILLIGRAM/KG

REACTIONS (9)
  - Haematochezia [Unknown]
  - Disseminated intravascular coagulation [Unknown]
  - Respiratory failure [Unknown]
  - Hypotension [Unknown]
  - Hypoperfusion [Unknown]
  - Pneumatosis [Unknown]
  - Off label use [Unknown]
  - Brain injury [Fatal]
  - General physical health deterioration [Fatal]
